FAERS Safety Report 14246902 (Version 1)
Quarter: 2017Q4

REPORT INFORMATION
  Report Type: Spontaneous
  Country: GB (occurrence: GB)
  Receive Date: 20171204
  Receipt Date: 20171204
  Transmission Date: 20180321
  Serious: Yes (Other)
  Sender: FDA-Public Use
  Company Number: GB-BIOVITRUM-2017GB1117

PATIENT
  Age: 19 Year
  Sex: Male

DRUGS (2)
  1. ORFADIN [Suspect]
     Active Substance: NITISINONE
     Indication: TYROSINAEMIA
     Dosage: 20 MG TWICE A DAY
  2. TYRCOOLER 20 [Concomitant]
     Dosage: 3 OF TYRCOOLER SUPPLEMENTS PER DAY

REACTIONS (2)
  - Memory impairment [Unknown]
  - Cognitive disorder [Unknown]
